FAERS Safety Report 10153467 (Version 1)
Quarter: 2014Q2

REPORT INFORMATION
  Report Type: Spontaneous
  Country: IN (occurrence: IN)
  Receive Date: 20140505
  Receipt Date: 20140505
  Transmission Date: 20141212
  Serious: Yes (Hospitalization)
  Sender: FDA-Public Use
  Company Number: IN-ROXANE LABORATORIES, INC.-2014-RO-00690RO

PATIENT
  Age: 65 Year
  Sex: 0

DRUGS (3)
  1. CYCLOPHOSPHAMIDE TABLETS USP [Suspect]
     Indication: PEMPHIGUS
     Dosage: 500 MG
     Route: 065
  2. DEXAMETHASONE [Suspect]
     Indication: PEMPHIGUS
     Route: 065
  3. DAPSONE [Suspect]
     Indication: PEMPHIGUS
     Dosage: 100 MG
     Route: 065

REACTIONS (2)
  - Respiratory failure [Unknown]
  - Pulmonary toxicity [Unknown]
